FAERS Safety Report 4686538-0 (Version None)
Quarter: 2005Q2

REPORT INFORMATION
  Report Type: 
  Country: None (occurrence: None)
  Receive Date: 20050609
  Receipt Date: 20050527
  Transmission Date: 20051028
  Serious: Yes (Hospitalization, Other)
  Sender: FDA-Public Use
  Company Number: US-KINGPHARMUSA00001-K200500704

PATIENT
  Age: 64 Year
  Sex: Male

DRUGS (9)
  1. ALTACE [Suspect]
     Route: 048
     Dates: start: 20030208, end: 20030224
  2. LASILIX [Suspect]
     Dates: start: 20030208, end: 20030224
  3. ALDACTONE [Suspect]
     Route: 048
     Dates: start: 20030208, end: 20030224
  4. GENTAMICIN SULFATE [Suspect]
     Indication: ANTIBACTERIAL PROPHYLAXIS
     Route: 042
     Dates: start: 20030207, end: 20030224
  5. SINTROM [Suspect]
     Route: 048
     Dates: start: 20030207, end: 20030224
  6. CLAMOXYL  /NET/ [Suspect]
     Indication: ANTIBACTERIAL PROPHYLAXIS
     Route: 042
     Dates: start: 20030207, end: 20030226
  7. VANCOMYCIN [Suspect]
     Indication: ANTIBACTERIAL PROPHYLAXIS
     Dosage: 2 G, QD
     Route: 042
     Dates: start: 20030207, end: 20030224
  8. TEMESTA [Suspect]
     Route: 048
     Dates: start: 20030208, end: 20030224
  9. MOPRAL [Concomitant]
     Dosage: UNK, UNK
     Dates: start: 20030208

REACTIONS (12)
  - ABSCESS [None]
  - CARDIAC VALVE DISEASE [None]
  - COLONIC POLYP [None]
  - DRUG RASH WITH EOSINOPHILIA AND SYSTEMIC SYMPTOMS [None]
  - ENDOCARDITIS [None]
  - EOSINOPHILIA [None]
  - EXANTHEM [None]
  - HYPERSENSITIVITY [None]
  - PLEURAL EFFUSION [None]
  - PYREXIA [None]
  - RASH MACULO-PAPULAR [None]
  - RENAL FAILURE ACUTE [None]
